FAERS Safety Report 5767719-1 (Version None)
Quarter: 2008Q2

REPORT INFORMATION
  Report Type: 
  Country: None (occurrence: None)
  Receive Date: 20080612
  Receipt Date: 20080608
  Transmission Date: 20081010
  Serious: Yes (Other)
  Sender: FDA-Public Use
  Company Number: US-JNJFOC-20080602733

PATIENT
  Sex: Male
  Weight: 88.45 kg

DRUGS (2)
  1. PEPCID COMPLETE [Suspect]
     Route: 048
  2. PEPCID COMPLETE [Suspect]
     Indication: DYSPEPSIA
     Dosage: 1-2 TABLETS/DAY
     Route: 048

REACTIONS (1)
  - RECTAL HAEMORRHAGE [None]
